FAERS Safety Report 25977348 (Version 3)
Quarter: 2025Q4

REPORT INFORMATION
  Report Type: Spontaneous
  Country: US (occurrence: US)
  Receive Date: 20251030
  Receipt Date: 20251216
  Transmission Date: 20260118
  Serious: No
  Sender: TOLMAR
  Company Number: US-Tolmar-TLM-2025-07914

PATIENT

DRUGS (3)
  1. ELIGARD [Suspect]
     Active Substance: LEUPROLIDE ACETATE
     Indication: Prostate cancer
     Dosage: ELIGARD 22.5MG?NO OUTER BOX IS AVAILABLE; DISCARDED?SYRINGE A:15513AUS APR/2027?SYRINGE B:15513BUS M
     Dates: start: 20251015
  2. ELIGARD [Suspect]
     Active Substance: LEUPROLIDE ACETATE
     Dosage: REPLACEMENT DOSE
  3. DEVICE [Suspect]
     Active Substance: DEVICE
     Indication: Prostate cancer
     Dosage: ELIGARD 22.5MG?NDC: 62935-227-10?NO OUTER BOX IS AVAILABLE; DISCARDED?SYRINGE A:15513AUS APR/2027?SY

REACTIONS (4)
  - Intercepted product preparation error [Unknown]
  - Device occlusion [Unknown]
  - Syringe issue [Unknown]
  - Device leakage [Unknown]

NARRATIVE: CASE EVENT DATE: 20251015
